FAERS Safety Report 9670881 (Version 2)
Quarter: 2013Q4

REPORT INFORMATION
  Report Type: Report from Study
  Country: BR (occurrence: BR)
  Receive Date: 20131106
  Receipt Date: 20131203
  Transmission Date: 20140711
  Serious: No
  Sender: FDA-Public Use
  Company Number: PHHY2013BR124974

PATIENT
  Sex: Female

DRUGS (1)
  1. DIOVAN [Suspect]
     Indication: BLOOD PRESSURE ABNORMAL
     Dosage: 1 DF, PER DAY

REACTIONS (5)
  - Movement disorder [Recovering/Resolving]
  - Cardiac disorder [Recovering/Resolving]
  - Local swelling [Recovering/Resolving]
  - Hypertension [Recovering/Resolving]
  - Drug ineffective [Recovering/Resolving]
